FAERS Safety Report 5787967-4 (Version None)
Quarter: 2008Q2

REPORT INFORMATION
  Report Type: 
  Country: None (occurrence: None)
  Receive Date: 20080625
  Receipt Date: 20080619
  Transmission Date: 20081010
  Serious: Yes (Other)
  Sender: FDA-Public Use
  Company Number: US-BRISTOL-MYERS SQUIBB COMPANY-14236525

PATIENT
  Age: 82 Year
  Sex: Female
  Weight: 107 kg

DRUGS (12)
  1. ORENCIA [Suspect]
     Indication: RHEUMATOID ARTHRITIS
     Dosage: DURING 2ND OR 3RD INFUSION EVENT OCCURED. 03/2008 INFUSION GIVEN
     Dates: start: 20071001
  2. WARFARIN SODIUM [Concomitant]
  3. METOPROLOL [Concomitant]
  4. FOLIC ACID [Concomitant]
  5. METHOTREXATE [Concomitant]
  6. ASPIRIN [Concomitant]
  7. MAXIDEX [Concomitant]
  8. VITAMIN B-12 [Concomitant]
  9. IRON [Concomitant]
  10. MIRALAX [Concomitant]
  11. ASCORBIC ACID [Concomitant]
  12. ZOCOR [Concomitant]

REACTIONS (2)
  - ATRIAL FLUTTER [None]
  - BLOOD PRESSURE DECREASED [None]
